FAERS Safety Report 9387157 (Version 3)
Quarter: 2014Q2

REPORT INFORMATION
  Report Type: Spontaneous
  Country: DE (occurrence: None)
  Receive Date: 20130702
  Receipt Date: 20140519
  Transmission Date: 20141212
  Serious: Yes (Hospitalization)
  Sender: FDA-Public Use
  Company Number: AUR-APL-2013-05413

PATIENT
  Age: 73 Year
  Sex: Male
  Weight: 93 kg

DRUGS (1)
  1. LEVETIRACETAM [Suspect]
     Indication: PARTIAL SEIZURES
     Dosage: 1000 MG (500 MG, 2 IN 1 D)

REACTIONS (14)
  - Overdose [None]
  - Fatigue [None]
  - Somnolence [None]
  - Stupor [None]
  - Foot fracture [None]
  - Loss of consciousness [None]
  - Dialysis [None]
  - Drug level above therapeutic [None]
  - Obesity [None]
  - Coma scale abnormal [None]
  - Skin ulcer [None]
  - Anaemia [None]
  - C-reactive protein increased [None]
  - Injury [None]
